FAERS Safety Report 7511565-5 (Version None)
Quarter: 2011Q2

REPORT INFORMATION
  Report Type: 
  Country: None (occurrence: None)
  Receive Date: 20110531
  Receipt Date: 20110520
  Transmission Date: 20111010
  Serious: Yes (Hospitalization)
  Sender: FDA-Public Use
  Company Number: US-JNJFOC-20110510010

PATIENT
  Sex: Female
  Weight: 63.5 kg

DRUGS (2)
  1. DURAGESIC-100 [Suspect]
     Indication: FIBROMYALGIA
     Dosage: 100 UG/HR 2 PATCHES
     Route: 062
     Dates: start: 20100101
  2. DURAGESIC-100 [Suspect]
     Indication: BACK PAIN
     Dosage: 100 UG/HR 2 PATCHES
     Route: 062
     Dates: start: 20100101

REACTIONS (4)
  - BACK PAIN [None]
  - PRODUCT ADHESION ISSUE [None]
  - WRONG TECHNIQUE IN DRUG USAGE PROCESS [None]
  - PRODUCT QUALITY ISSUE [None]
